FAERS Safety Report 6770832-3 (Version None)
Quarter: 2010Q2

REPORT INFORMATION
  Report Type: 
  Country: None (occurrence: None)
  Receive Date: 20100614
  Receipt Date: 20100614
  Transmission Date: 20101027
  Serious: No
  Sender: FDA-Public Use
  Company Number: None

PATIENT
  Age: 56 Year
  Sex: Female
  Weight: 47.7 kg

DRUGS (1)
  1. TOPIRAMATE [Suspect]
     Indication: POST CONCUSSION SYNDROME
     Dosage: 100 MG 1X DAILY ORALLY
     Route: 048
     Dates: start: 20090401, end: 20091201

REACTIONS (3)
  - DRUG INEFFECTIVE [None]
  - MIGRAINE [None]
  - PRODUCT SUBSTITUTION ISSUE [None]
